FAERS Safety Report 4798102-3 (Version None)
Quarter: 2005Q4

REPORT INFORMATION
  Report Type: 
  Country: None (occurrence: None)
  Receive Date: 20051012
  Receipt Date: 20051012
  Transmission Date: 20060501
  Serious: Yes (Hospitalization)
  Sender: FDA-Public Use
  Company Number: None

PATIENT
  Sex: Female
  Weight: 99.7913 kg

DRUGS (6)
  1. COUMADIN [Suspect]
     Indication: ANTICOAGULANT THERAPY
     Dosage: PO [PRIOR TO ADMISSION]
     Route: 048
  2. FLOMAX [Concomitant]
  3. VERAPAMIL [Concomitant]
  4. PROSCAR [Concomitant]
  5. LISINOPRIL AND HYDROCHLOROTHIAZIDE [Concomitant]
  6. TENORMIN [Concomitant]

REACTIONS (3)
  - DRUG TOXICITY [None]
  - ECCHYMOSIS [None]
  - OEDEMA PERIPHERAL [None]
